FAERS Safety Report 9397499 (Version 1)
Quarter: 2013Q3

REPORT INFORMATION
  Report Type: Spontaneous
  Country: JP (occurrence: JP)
  Receive Date: 20130712
  Receipt Date: 20130712
  Transmission Date: 20140515
  Serious: Yes (Hospitalization)
  Sender: FDA-Public Use
  Company Number: JP-MERCK-1307JPN006273

PATIENT
  Sex: Female

DRUGS (2)
  1. BONALON [Suspect]
     Indication: OSTEOARTHRITIS
     Dosage: 35 MG, QW
     Route: 048
  2. LYRICA [Suspect]
     Dosage: UNKNOWN
     Route: 048

REACTIONS (5)
  - Hypokalaemia [Unknown]
  - Oedema peripheral [Unknown]
  - Stomatitis [Unknown]
  - Hordeolum [Unknown]
  - Bone deformity [Unknown]
